FAERS Safety Report 13840685 (Version 1)
Quarter: 2017Q3

REPORT INFORMATION
  Report Type: Spontaneous
  Country: US (occurrence: US)
  Receive Date: 20170807
  Receipt Date: 20170807
  Transmission Date: 20171127
  Serious: No
  Sender: FDA-Public Use
  Company Number: US-ELI_LILLY_AND_COMPANY-US201708001889

PATIENT
  Sex: Female

DRUGS (2)
  1. BASAGLAR [Suspect]
     Active Substance: INSULIN GLARGINE
     Indication: PRODUCT USED FOR UNKNOWN INDICATION
     Dosage: 5 U, DAILY
     Route: 065
     Dates: start: 201705
  2. BASAGLAR [Suspect]
     Active Substance: INSULIN GLARGINE
     Dosage: 2 U, DAILY
     Route: 065

REACTIONS (1)
  - Blood glucose decreased [Recovering/Resolving]
